FAERS Safety Report 16125184 (Version 2)
Quarter: 2019Q2

REPORT INFORMATION
  Report Type: Spontaneous
  Country: US (occurrence: US)
  Receive Date: 20190327
  Receipt Date: 20190417
  Transmission Date: 20190711
  Serious: No
  Sender: FDA-Public Use
  Company Number: US-009507513-1903USA011506

PATIENT
  Age: 61 Year
  Sex: Male

DRUGS (11)
  1. FLONASE [Concomitant]
     Active Substance: FLUTICASONE PROPIONATE
     Dosage: UNK
  2. ASMANEX [Suspect]
     Active Substance: MOMETASONE FUROATE
     Dosage: 2 INHALATIONS/TWICE DAILY
     Route: 055
     Dates: start: 20190323
  3. FENOFIBRATE. [Concomitant]
     Active Substance: FENOFIBRATE
     Dosage: UNK
  4. CLONAZEPAM. [Concomitant]
     Active Substance: CLONAZEPAM
     Dosage: UNK
  5. ASMANEX [Suspect]
     Active Substance: MOMETASONE FUROATE
     Indication: LUNG INFECTION
     Dosage: 2 INHALATIONS/TWICE DAILY
     Route: 055
     Dates: start: 2016
  6. NEILMED [Concomitant]
     Dosage: UNK
  7. PANTOPRAZOLE [Concomitant]
     Active Substance: PANTOPRAZOLE
     Dosage: UNK
  8. PHENELZINE SULFATE. [Concomitant]
     Active Substance: PHENELZINE SULFATE
     Dosage: UNK
  9. ASMANEX [Suspect]
     Active Substance: MOMETASONE FUROATE
     Dosage: 2 INHALATIONS/TWICE DAILY
     Route: 055
     Dates: end: 201903
  10. AMLODIPINE [Concomitant]
     Active Substance: AMLODIPINE BESYLATE
     Dosage: UNK
  11. ALLEGRA [Concomitant]
     Active Substance: FEXOFENADINE HYDROCHLORIDE
     Dosage: UNK

REACTIONS (10)
  - Malaise [Unknown]
  - Product dose omission [Unknown]
  - Drug ineffective for unapproved indication [Unknown]
  - Influenza like illness [Unknown]
  - Dry mouth [Recovered/Resolved]
  - Insomnia [Recovered/Resolved]
  - Poor quality sleep [Unknown]
  - Product quality issue [Unknown]
  - Dyspnoea [Recovered/Resolved]
  - Product use in unapproved indication [Unknown]

NARRATIVE: CASE EVENT DATE: 2016
